FAERS Safety Report 7452197-7 (Version None)
Quarter: 2011Q2

REPORT INFORMATION
  Report Type: 
  Country: None (occurrence: None)
  Receive Date: 20110502
  Receipt Date: 20110321
  Transmission Date: 20111010
  Serious: Yes (Other)
  Sender: FDA-Public Use
  Company Number: US-BAYER-201039590NA

PATIENT
  Age: 36 Year
  Sex: Female
  Weight: 63.946 kg

DRUGS (5)
  1. ORTHO TRI-CYCLEN [Concomitant]
  2. VITAMIN C [Concomitant]
  3. PREDNISONE [Concomitant]
  4. YAZ [Suspect]
     Indication: CONTRACEPTION
     Dosage: UNK
     Dates: start: 20080401, end: 20080601
  5. IBUPROFEN [Concomitant]

REACTIONS (1)
  - THROMBOSIS [None]
